FAERS Safety Report 8344095-1 (Version None)
Quarter: 2012Q2

REPORT INFORMATION
  Report Type: 
  Country: None (occurrence: None)
  Receive Date: 20120504
  Receipt Date: 20111015
  Transmission Date: 20120825
  Serious: Yes (Hospitalization)
  Sender: FDA-Public Use
  Company Number: 2011AP002410

PATIENT
  Age: 58 Year
  Sex: Male

DRUGS (16)
  1. FORMOTEROL FUMARATE [Concomitant]
  2. FENTANYL CITRATE [Concomitant]
  3. BUDESONIDE [Concomitant]
  4. ALBUTEROL [Concomitant]
  5. REFFOUS SULFATE [Concomitant]
  6. SENNA-MINT WAF [Concomitant]
  7. KETAMINE HCL [Suspect]
     Indication: GENERAL ANAESTHESIA
     Dosage: 100 MG, IV
     Route: 042
  8. METFORMIN HCL [Concomitant]
  9. MIDAZOLAM [Concomitant]
  10. TOLTERODINE TARTRATE [Concomitant]
  11. GABAPENTIN [Suspect]
     Indication: PAIN
     Dosage: 900 MG, TID
  12. GABAPENTIN [Suspect]
     Indication: OFF LABEL USE
     Dosage: 900 MG, TID
  13. LISINOPRIL [Concomitant]
  14. HYDROCHLOROTHIAZIDE [Concomitant]
  15. PROPOFOL [Concomitant]
  16. SUCCINYLCHOLINE CHLORIDE [Concomitant]

REACTIONS (8)
  - PARALYSIS FLACCID [None]
  - UNRESPONSIVE TO STIMULI [None]
  - AREFLEXIA [None]
  - DEPRESSED LEVEL OF CONSCIOUSNESS [None]
  - DISSOCIATION [None]
  - OFF LABEL USE [None]
  - DRUG INTERACTION [None]
  - CONVERSION DISORDER [None]
